FAERS Safety Report 5013153-1 (Version None)
Quarter: 2006Q2

REPORT INFORMATION
  Report Type: 
  Country: None (occurrence: None)
  Receive Date: 20060530
  Receipt Date: 20060308
  Transmission Date: 20061013
  Serious: Yes (Other)
  Sender: FDA-Public Use
  Company Number: US-GLAXOSMITHKLINE-A0596776A

PATIENT
  Age: 56 Year
  Sex: Male

DRUGS (4)
  1. WELLBUTRIN XL [Suspect]
     Indication: DEPRESSION
     Dosage: 300MG PER DAY
     Route: 048
     Dates: start: 20030101
  2. OXYCONTIN [Concomitant]
  3. FLOMAX [Concomitant]
  4. IONAMIN [Concomitant]

REACTIONS (1)
  - HEPATIC ENZYME INCREASED [None]
